FAERS Safety Report 5524596-1 (Version None)
Quarter: 2007Q4

REPORT INFORMATION
  Report Type: 
  Country: None (occurrence: None)
  Receive Date: 20071123
  Receipt Date: 20071113
  Transmission Date: 20080405
  Serious: Yes (Other)
  Sender: FDA-Public Use
  Company Number: NL-BAYER-200716870GDS

PATIENT
  Age: 50 Year
  Sex: Male

DRUGS (1)
  1. KOGENATE [Suspect]
     Indication: FACTOR VIII DEFICIENCY
     Route: 065

REACTIONS (1)
  - HEPATIC NEOPLASM MALIGNANT [None]
